FAERS Safety Report 14316887 (Version 33)
Quarter: 2023Q1

REPORT INFORMATION
  Report Type: Other
  Country: GB (occurrence: GB)
  Receive Date: 20171222
  Receipt Date: 20230203
  Transmission Date: 20230418
  Serious: Yes (Other)
  Sender: FDA-Public Use
  Company Number: GB-ASPEN-GLO2017GB008664

PATIENT

DRUGS (199)
  1. MELPHALAN [Suspect]
     Active Substance: MELPHALAN
     Indication: Plasma cell leukaemia
     Dosage: 14 MG, QD, 1 CYCLE
     Route: 065
     Dates: start: 20171107, end: 20171110
  2. MELPHALAN [Suspect]
     Active Substance: MELPHALAN
     Dosage: 14 MG, QD
     Route: 065
     Dates: start: 20171103, end: 20171103
  3. MELPHALAN [Suspect]
     Active Substance: MELPHALAN
     Dosage: 14 MG, 1 CYCLE
     Route: 065
  4. MELPHALAN [Suspect]
     Active Substance: MELPHALAN
     Dosage: UNK (1 CYCLE)
     Route: 065
     Dates: start: 20171110
  5. MELPHALAN [Suspect]
     Active Substance: MELPHALAN
     Dosage: 14 MG, TID
     Route: 065
     Dates: start: 20171103, end: 20171106
  6. MELPHALAN [Suspect]
     Active Substance: MELPHALAN
     Dosage: 14 MG
     Route: 065
     Dates: start: 20171110, end: 20171114
  7. MELPHALAN [Suspect]
     Active Substance: MELPHALAN
     Dosage: 14 MG, QD
     Route: 065
     Dates: start: 20171106, end: 20171106
  8. MELPHALAN [Suspect]
     Active Substance: MELPHALAN
     Dosage: 14 MG, QD
     Route: 065
     Dates: start: 20171110, end: 20171110
  9. MELPHALAN [Suspect]
     Active Substance: MELPHALAN
     Dosage: 14 MG, QD
     Route: 065
     Dates: start: 201711, end: 20171107
  10. MELPHALAN [Suspect]
     Active Substance: MELPHALAN
     Dosage: 56 MG
     Route: 065
     Dates: start: 20171106, end: 20171106
  11. MELPHALAN [Suspect]
     Active Substance: MELPHALAN
     Dosage: UNK
     Route: 065
     Dates: start: 20171106, end: 20171106
  12. MELPHALAN [Suspect]
     Active Substance: MELPHALAN
     Dosage: UNK
     Route: 065
     Dates: start: 20171110, end: 20171110
  13. MELPHALAN [Suspect]
     Active Substance: MELPHALAN
     Dosage: UNK
     Route: 065
     Dates: start: 20171103, end: 20171103
  14. MELPHALAN [Suspect]
     Active Substance: MELPHALAN
     Dosage: 14 MG,  1 CYCLE
     Route: 065
  15. MELPHALAN [Suspect]
     Active Substance: MELPHALAN
     Dosage: 14 MG,  1 CYCLE
     Route: 065
     Dates: start: 20171103, end: 20171106
  16. MELPHALAN [Suspect]
     Active Substance: MELPHALAN
     Dosage: 14 MG, QD(VMP REGIMEN, DAY1 TO4, CYCLE 2
     Route: 065
     Dates: start: 20171103, end: 20171106
  17. MELPHALAN [Suspect]
     Active Substance: MELPHALAN
     Dosage: 10 MG, PRN(AS NECESSARY)
     Route: 065
  18. MELPHALAN [Suspect]
     Active Substance: MELPHALAN
     Dosage: UNK
     Route: 065
     Dates: start: 20171107
  19. MELPHALAN [Suspect]
     Active Substance: MELPHALAN
     Dosage: UNK
     Route: 065
     Dates: start: 20171110, end: 20171114
  20. MELPHALAN [Suspect]
     Active Substance: MELPHALAN
     Dosage: UNK, QD
     Route: 065
     Dates: start: 20171103, end: 20171103
  21. MELPHALAN [Suspect]
     Active Substance: MELPHALAN
     Dosage: UNK UNK, QD
     Route: 065
  22. MELPHALAN [Suspect]
     Active Substance: MELPHALAN
     Dosage: 266 MG
     Route: 065
  23. MELPHALAN [Suspect]
     Active Substance: MELPHALAN
     Dosage: 42 MG
     Route: 065
     Dates: start: 20171103, end: 20171106
  24. ALLOPURINOL [Suspect]
     Active Substance: ALLOPURINOL
     Indication: Product used for unknown indication
     Dosage: 300 MG, QD
     Route: 065
     Dates: start: 20171104, end: 20171120
  25. ALLOPURINOL [Suspect]
     Active Substance: ALLOPURINOL
     Dosage: 300 MG, QD
     Route: 065
     Dates: start: 20171114
  26. ALLOPURINOL [Suspect]
     Active Substance: ALLOPURINOL
     Dosage: 300 MILLIGRAM (THERAPY IS ONGOING)
     Route: 065
     Dates: start: 20171120
  27. ALLOPURINOL [Suspect]
     Active Substance: ALLOPURINOL
     Dosage: 30 MG, QD
     Route: 065
     Dates: start: 20171120
  28. ALLOPURINOL [Suspect]
     Active Substance: ALLOPURINOL
     Dosage: 30 MG, QD,
     Route: 065
     Dates: start: 20171104, end: 20171120
  29. ALLOPURINOL [Suspect]
     Active Substance: ALLOPURINOL
     Dosage: 300 MG, QD
     Route: 065
     Dates: start: 20181120
  30. ALLOPURINOL [Suspect]
     Active Substance: ALLOPURINOL
     Dosage: UNK
     Route: 065
  31. ALLOPURINOL [Suspect]
     Active Substance: ALLOPURINOL
     Dosage: UNK
     Route: 065
     Dates: start: 20171120
  32. ALLOPURINOL [Suspect]
     Active Substance: ALLOPURINOL
     Dosage: 120 MG
     Route: 065
     Dates: start: 20171120
  33. ALLOPURINOL [Suspect]
     Active Substance: ALLOPURINOL
     Dosage: 300 UNK
     Route: 065
     Dates: start: 20181120
  34. ALLOPURINOL [Suspect]
     Active Substance: ALLOPURINOL
     Dosage: 300 MILLIGRAM DAILY; MEDICATION ERROR, MISUSE, ABUSE,
     Route: 065
     Dates: start: 20171104
  35. ALLOPURINOL [Suspect]
     Active Substance: ALLOPURINOL
     Dosage: 30 MILLIGRAM, DAILY MEDICATION ERROR, MISUSE, ABUSE, OFF LABEL USE
     Route: 065
     Dates: start: 20171104, end: 20171120
  36. ALLOPURINOL [Suspect]
     Active Substance: ALLOPURINOL
     Dosage: UNK
     Route: 065
     Dates: start: 20171120
  37. ALLOPURINOL [Suspect]
     Active Substance: ALLOPURINOL
     Dosage: 300 MG, QD, INJECTION
  38. ALLOPURINOL [Suspect]
     Active Substance: ALLOPURINOL
     Dosage: 300 MG, QD
     Route: 065
  39. ALLOPURINOL [Suspect]
     Active Substance: ALLOPURINOL
     Dosage: 30 MILLIGRAM,QD, CUMULATIVE DOSE: 3900 MG
     Route: 065
     Dates: start: 20171120
  40. ALLOPURINOL [Suspect]
     Active Substance: ALLOPURINOL
     Dosage: 30 MILLIGRAM,QD, CUMULATIVE DOSE: 120 MG
     Route: 065
     Dates: start: 20171120
  41. ALLOPURINOL [Suspect]
     Active Substance: ALLOPURINOL
     Dosage: UNK
  42. ALLOPURINOL [Suspect]
     Active Substance: ALLOPURINOL
     Dosage: 30 MILLIGRAM,PRN
     Route: 065
  43. ALLOPURINOL [Suspect]
     Active Substance: ALLOPURINOL
     Dosage: 300 MG, QD, CUMULATIVE DOSE: 900 MGUNK
     Route: 065
     Dates: start: 20171104, end: 20171120
  44. ALLOPURINOL [Suspect]
     Active Substance: ALLOPURINOL
     Dosage: 30MG,QD
     Route: 065
     Dates: start: 20171104, end: 20171120
  45. DEXAMETHASONE [Suspect]
     Active Substance: DEXAMETHASONE
     Indication: Plasma cell leukaemia
     Dosage: 20 MG, QD
     Route: 065
     Dates: start: 20171102, end: 20171106
  46. DEXAMETHASONE [Suspect]
     Active Substance: DEXAMETHASONE
     Indication: Product used for unknown indication
     Dosage: 20 MG, QD
     Route: 065
     Dates: start: 20171102, end: 20171106
  47. DEXAMETHASONE [Suspect]
     Active Substance: DEXAMETHASONE
     Dosage: 20 MG
     Route: 065
  48. DEXAMETHASONE [Suspect]
     Active Substance: DEXAMETHASONE
     Dosage: 100 MG
     Route: 065
  49. DEXAMETHASONE [Suspect]
     Active Substance: DEXAMETHASONE
     Dosage: 100 MG
     Route: 065
     Dates: start: 20171102, end: 20171106
  50. DEXAMETHASONE [Suspect]
     Active Substance: DEXAMETHASONE
     Dosage: UNK
     Route: 065
  51. DEXAMETHASONE [Suspect]
     Active Substance: DEXAMETHASONE
     Dosage: 20 MG
     Route: 065
  52. DEXAMETHASONE [Suspect]
     Active Substance: DEXAMETHASONE
     Dosage: 200 MG
     Route: 065
  53. DEXAMETHASONE [Suspect]
     Active Substance: DEXAMETHASONE
     Dosage: 20 MILLIGRAM DAILY;MEDICATION ERROR, MISUSE, ABUSE, OFF LABEL USE
     Route: 065
     Dates: start: 20171102, end: 20171106
  54. DEXAMETHASONE [Suspect]
     Active Substance: DEXAMETHASONE
     Dosage: 100MG
     Route: 065
  55. DEXAMETHASONE [Suspect]
     Active Substance: DEXAMETHASONE
     Dosage: 20 MG, QD, CUMULATIVE DOSE 100 MG
     Route: 065
     Dates: start: 20171102, end: 20171106
  56. DEXAMETHASONE [Suspect]
     Active Substance: DEXAMETHASONE
     Dosage: DOSAGE FORM: UNSPECIFIED
     Route: 065
  57. FENTANYL [Suspect]
     Active Substance: FENTANYL
     Indication: Product used for unknown indication
     Dosage: 12 MCG Q1HR
     Route: 062
     Dates: start: 20171108
  58. FENTANYL [Suspect]
     Active Substance: FENTANYL
     Dosage: 1 UNK, 1 DOSE HOURLY
     Route: 062
     Dates: start: 20171108
  59. FENTANYL [Suspect]
     Active Substance: FENTANYL
     Dosage: UNK
     Route: 062
     Dates: start: 20171108
  60. FENTANYL [Suspect]
     Active Substance: FENTANYL
     Dosage: 12 MG, 1 DOSE HOURLY
     Route: 062
     Dates: start: 20171108
  61. FENTANYL [Suspect]
     Active Substance: FENTANYL
     Dosage: 12MCG (FROM 08-NOV-2017)
     Route: 055
  62. FENTANYL [Suspect]
     Active Substance: FENTANYL
     Dosage: 1 DOSAGE FORM, QH/START DATE:08-NOV-2017
     Route: 062
     Dates: start: 20171108, end: 20171108
  63. FENTANYL [Suspect]
     Active Substance: FENTANYL
     Dosage: 1 DOSAGE FORM, QH/START DATE:08-NOV-2017
     Route: 062
     Dates: start: 20171108, end: 20171108
  64. FENTANYL CITRATE [Suspect]
     Active Substance: FENTANYL CITRATE
     Indication: Product used for unknown indication
     Dosage: 12 MCG, 1 DOSE HOURLY (SOLUTION FOR INJECTION)
     Route: 055
     Dates: start: 20171108
  65. FENTANYL CITRATE [Suspect]
     Active Substance: FENTANYL CITRATE
     Dosage: 12 MCG, 1 DOSE HOURLY
     Route: 055
     Dates: start: 20171108
  66. FENTANYL CITRATE [Suspect]
     Active Substance: FENTANYL CITRATE
     Dosage: 12 MCG, 1 DOSE HOURLY
     Route: 055
     Dates: start: 20171108
  67. FENTANYL CITRATE [Suspect]
     Active Substance: FENTANYL CITRATE
     Dosage: 12 MCG, 1 DOSE HOURLY
     Route: 055
     Dates: start: 20171108
  68. FENTANYL CITRATE [Suspect]
     Active Substance: FENTANYL CITRATE
     Dosage: 12 MCG
     Route: 055
     Dates: start: 20171108
  69. SODIUM CHLORIDE [Suspect]
     Active Substance: SODIUM CHLORIDE
     Indication: Medication dilution
     Dosage: 1 CYCLE
     Route: 041
     Dates: start: 20171110, end: 20171114
  70. SODIUM CHLORIDE [Suspect]
     Active Substance: SODIUM CHLORIDE
     Indication: Emotional distress
     Dosage: UNK UNK, QD, 1 CYCLE
     Route: 041
     Dates: start: 20171107, end: 201711
  71. SODIUM CHLORIDE [Suspect]
     Active Substance: SODIUM CHLORIDE
     Dosage: UNK, 1 CYCLE
     Route: 065
     Dates: start: 20171113, end: 20171113
  72. SODIUM CHLORIDE [Suspect]
     Active Substance: SODIUM CHLORIDE
     Dosage: UNK (1 CYCLE)
     Route: 041
     Dates: start: 20171106, end: 20171106
  73. SODIUM CHLORIDE [Suspect]
     Active Substance: SODIUM CHLORIDE
     Dosage: 1 CYCLE
     Route: 041
     Dates: start: 20171103, end: 20171106
  74. SODIUM CHLORIDE [Suspect]
     Active Substance: SODIUM CHLORIDE
     Dosage: 1 CYCLE
     Route: 041
     Dates: start: 20171110, end: 20171110
  75. SODIUM CHLORIDE [Suspect]
     Active Substance: SODIUM CHLORIDE
     Dosage: UNK, 1 CYCLE
     Route: 042
     Dates: start: 20171103, end: 20171103
  76. SODIUM CHLORIDE [Suspect]
     Active Substance: SODIUM CHLORIDE
     Dosage: UNK
     Route: 041
     Dates: start: 20171103
  77. SODIUM CHLORIDE [Suspect]
     Active Substance: SODIUM CHLORIDE
     Dosage: UNK (1 CYCLE), 0.9, SOLUTION FOR INFUSION DAY 1 OF CYCLE 2, VMP REGIMEN, COMPOUNDED WITH BORTEZOMIB
     Route: 041
     Dates: start: 20171106, end: 20171106
  78. SODIUM CHLORIDE [Suspect]
     Active Substance: SODIUM CHLORIDE
     Dosage: UNK (1 CYCLE), 0.9, SOLUTION FOR INFUSION DAY 1 OF CYCLE 2, VMP REGIMEN, COMPOUNDED WITH BORTEZOMIB
     Route: 041
     Dates: start: 20171110, end: 20171110
  79. SODIUM CHLORIDE [Suspect]
     Active Substance: SODIUM CHLORIDE
     Dosage: UNK (1 CYCLE), 0.9, SOLUTION FOR INFUSION DAY 1 OF CYCLE 2, VMP REGIMEN, COMPOUNDED WITH BORTEZOMIB
     Route: 041
     Dates: start: 20171103, end: 20171103
  80. SODIUM CHLORIDE [Suspect]
     Active Substance: SODIUM CHLORIDE
     Dosage: UNK, 1 CYCLE
     Route: 041
     Dates: start: 20170806, end: 20170806
  81. SODIUM CHLORIDE [Suspect]
     Active Substance: SODIUM CHLORIDE
     Dosage: UNK, 1 CYCLE
     Route: 041
     Dates: start: 20170803, end: 20170806
  82. SODIUM CHLORIDE [Suspect]
     Active Substance: SODIUM CHLORIDE
     Dosage: UNK
  83. PREDNISONE [Suspect]
     Active Substance: PREDNISONE
     Indication: Plasma cell leukaemia
     Dosage: 70 MG, QD 1 CYCLE
     Route: 065
     Dates: start: 20171103, end: 20171103
  84. PREDNISONE [Suspect]
     Active Substance: PREDNISONE
     Dosage: 70 MILLIGRAM, QD, 1 CYCLE
     Route: 065
     Dates: start: 20171106, end: 20171106
  85. PREDNISONE [Suspect]
     Active Substance: PREDNISONE
     Dosage: 70 MG, QD, 1 CYCLE
     Route: 065
  86. PREDNISONE [Suspect]
     Active Substance: PREDNISONE
     Dosage: 70 MG
     Route: 065
  87. PREDNISONE [Suspect]
     Active Substance: PREDNISONE
     Dosage: 70 MILLIGRAM, QD, 1 CYCLE
     Route: 065
     Dates: start: 20171103, end: 20171106
  88. PREDNISONE [Suspect]
     Active Substance: PREDNISONE
     Dosage: 70 MILLIGRAM, QD, 1 CYCLE
     Route: 065
     Dates: start: 20171106, end: 20171106
  89. PREDNISONE [Suspect]
     Active Substance: PREDNISONE
     Dosage: 70 MILLIGRAM, ONCE A DAY, CUMULATIVE DOSE 280 MG
     Route: 065
     Dates: start: 20171103, end: 20171103
  90. PREDNISONE [Suspect]
     Active Substance: PREDNISONE
     Dosage: UNK(1 CYCLE)
     Route: 065
     Dates: start: 20171106, end: 20171106
  91. PREDNISONE [Suspect]
     Active Substance: PREDNISONE
     Dosage: 70 MG,QD, 1 CYCLE
     Route: 065
     Dates: start: 20171106, end: 20171106
  92. PREDNISONE [Suspect]
     Active Substance: PREDNISONE
     Dosage: UNK (1 CYCLE)
     Route: 065
  93. VELCADE [Suspect]
     Active Substance: BORTEZOMIB
     Indication: Plasma cell leukaemia
     Dosage: 1.8 MG/M2
     Route: 058
     Dates: start: 20171110, end: 20171114
  94. VELCADE [Suspect]
     Active Substance: BORTEZOMIB
     Indication: Emotional distress
     Dosage: 1.8 MG
     Route: 058
     Dates: start: 20171107, end: 201711
  95. VELCADE [Suspect]
     Active Substance: BORTEZOMIB
     Dosage: DAY 8 OF CYCLE 2, DOSE: 2 MG, COMPOUNDED WITH SODIUM CHLORIDE, ON DAYS 1, 4, 8, 11, 22, 25, 29, 32
     Route: 058
     Dates: start: 20171110, end: 20171110
  96. VELCADE [Suspect]
     Active Substance: BORTEZOMIB
     Dosage: 1.3 MG/M2, 1 CYCLE
     Route: 058
     Dates: start: 20171113, end: 20171113
  97. VELCADE [Suspect]
     Active Substance: BORTEZOMIB
     Dosage: 1.3 MG/M2, 1 CYCLE
     Route: 058
     Dates: start: 20171116, end: 20171116
  98. VELCADE [Suspect]
     Active Substance: BORTEZOMIB
     Dosage: 1.8 MG/M2, 1 CYCLE
     Route: 058
     Dates: start: 20171103, end: 20171103
  99. VELCADE [Suspect]
     Active Substance: BORTEZOMIB
     Dosage: DAY 4 OF CYCLE 2, DOSE AS 2 MG, COMPOUNDED WITH SODIUM CHLORIDE, ON DAYS 1, 4, 8, 11, 22, 25, 29, 32
     Route: 058
     Dates: start: 20171106, end: 20171106
  100. VELCADE [Suspect]
     Active Substance: BORTEZOMIB
     Dosage: UNK, LYOPHILIZED POWDER
     Route: 058
  101. VELCADE [Suspect]
     Active Substance: BORTEZOMIB
     Dosage: 1.8 MG/M2
     Route: 058
     Dates: start: 20171107, end: 201711
  102. VELCADE [Suspect]
     Active Substance: BORTEZOMIB
     Dosage: ON DAYS 1, 4, 8, 11, 22, 25, 29, 32, DAY 1 OF CYCLE 2;DOSE: 2 MG, COMPOUNDED WITH SODIUM CHLORIDE
     Route: 058
     Dates: start: 20171103, end: 20171103
  103. VELCADE [Suspect]
     Active Substance: BORTEZOMIB
     Dosage: UNK1.8 MG/M2 Q CYCLE / 1.3 MG/M2 DAILY / 1.8MG/M2 UNK / DOSE TEXT, 1.3 MG/M2, 1 CYCLE / 1.8 MG/M
     Route: 065
  104. VELCADE [Suspect]
     Active Substance: BORTEZOMIB
     Dosage: 1.3 MG/M2, 1 CYCLE
     Route: 058
     Dates: start: 20171103, end: 20171103
  105. VELCADE [Suspect]
     Active Substance: BORTEZOMIB
     Dosage: 1.8 MG/M2
     Route: 058
     Dates: start: 20171110, end: 20171114
  106. VELCADE [Suspect]
     Active Substance: BORTEZOMIB
     Dosage: 2 MG/M2, QD
     Route: 058
     Dates: start: 20171106, end: 20171106
  107. VELCADE [Suspect]
     Active Substance: BORTEZOMIB
     Dosage: 1 MG/M2
     Route: 058
  108. VELCADE [Suspect]
     Active Substance: BORTEZOMIB
     Dosage: 2 MG/M2, QD
     Route: 058
     Dates: start: 20171103, end: 20171103
  109. VELCADE [Suspect]
     Active Substance: BORTEZOMIB
     Dosage: 2 MG/M2, QD
     Route: 058
     Dates: start: 20171110, end: 20171110
  110. VELCADE [Suspect]
     Active Substance: BORTEZOMIB
     Dosage: 1.8 MG
     Route: 058
     Dates: start: 20141110, end: 20141114
  111. VELCADE [Suspect]
     Active Substance: BORTEZOMIB
     Dosage: 1.3 MG/M2, 1 CYCLE POWDER)
     Route: 058
     Dates: start: 20221106, end: 20221106
  112. VELCADE [Suspect]
     Active Substance: BORTEZOMIB
     Dosage: 1 MG/M2, QD
     Dates: start: 20171106, end: 20171106
  113. VELCADE [Suspect]
     Active Substance: BORTEZOMIB
     Dosage: 1.8MG
     Route: 058
     Dates: start: 20171107, end: 201711
  114. VELCADE [Suspect]
     Active Substance: BORTEZOMIB
     Dosage: 2 MG/M2
     Route: 058
     Dates: start: 20171110, end: 20171114
  115. VELCADE [Suspect]
     Active Substance: BORTEZOMIB
     Dosage: 1.8 MILLIGRAM/SQ. METER
     Route: 058
     Dates: start: 20171114
  116. VELCADE [Suspect]
     Active Substance: BORTEZOMIB
     Dosage: 1.3 MILLIGRAM/SQ. METER, CYCLE
     Route: 058
     Dates: start: 20221110, end: 20221110
  117. VELCADE [Suspect]
     Active Substance: BORTEZOMIB
     Dosage: 1.3 MG/M2, 1 CYCLE POWDER)
     Route: 058
     Dates: start: 20221110, end: 20221110
  118. VELCADE [Suspect]
     Active Substance: BORTEZOMIB
     Dosage: LYOPHILIZED POWDER, DOSE RE-INTRODUCED
     Route: 058
  119. VELCADE [Suspect]
     Active Substance: BORTEZOMIB
     Dosage: INJECTION, 1.8 MG, UNK, STRENGTH 2.5 MG/ML
     Route: 058
     Dates: start: 20171107, end: 201711
  120. VELCADE [Suspect]
     Active Substance: BORTEZOMIB
     Dosage: 1.3 MG/M2, 1 CYCLE
     Route: 058
     Dates: start: 20171103, end: 20171103
  121. VELCADE [Suspect]
     Active Substance: BORTEZOMIB
     Dosage: 1 MG/M2,QD
     Route: 058
     Dates: start: 20171106, end: 20171106
  122. VELCADE [Suspect]
     Active Substance: BORTEZOMIB
     Dosage: 2 MG/M2,PRN
     Route: 058
     Dates: start: 20171110, end: 20171114
  123. VELCADE [Suspect]
     Active Substance: BORTEZOMIB
     Dosage: LYOPHILIZED POWDER
     Route: 058
     Dates: start: 20171110, end: 20171114
  124. FENTANYL [Suspect]
     Active Substance: FENTANYL
     Indication: Product used for unknown indication
     Dosage: 12 MCG, 1 DOSE HOURLY
     Route: 062
     Dates: start: 20171108
  125. FENTANYL [Suspect]
     Active Substance: FENTANYL
     Dosage: 12 MCG HQ (SOLUTION FOR INJECTION)
     Route: 062
     Dates: start: 20171108
  126. FENTANYL [Suspect]
     Active Substance: FENTANYL
     Dosage: 12 MG, QH
     Route: 065
     Dates: start: 20171108
  127. FENTANYL [Suspect]
     Active Substance: FENTANYL
     Dosage: UNK, EVERY 1HR
     Route: 062
     Dates: start: 20171108
  128. FENTANYL [Suspect]
     Active Substance: FENTANYL
     Dosage: 12 MILLIGRAM,PRN
     Route: 062
  129. FENTANYL [Suspect]
     Active Substance: FENTANYL
     Dosage: 12 MILLIGRAM,1X AN HOUR
     Route: 065
  130. FENTANYL [Suspect]
     Active Substance: FENTANYL
     Dosage: 1 DOSAGE FORM, QH/START DATE:08-NOV-2017
     Route: 062
  131. FENTANYL [Suspect]
     Active Substance: FENTANYL
     Dosage: 12 MILLIGRAM,1X AN HOUR
     Route: 062
     Dates: start: 20171108
  132. OMEPRAZOLE [Suspect]
     Active Substance: OMEPRAZOLE
     Indication: Product used for unknown indication
     Dosage: 20 MG, QD (EVERY MORNING)
     Route: 048
  133. OMEPRAZOLE [Suspect]
     Active Substance: OMEPRAZOLE
     Dosage: 20 MG, QD
     Route: 065
  134. OMEPRAZOLE [Suspect]
     Active Substance: OMEPRAZOLE
     Dosage: 10 MG, QD
     Route: 048
  135. OMEPRAZOLE [Suspect]
     Active Substance: OMEPRAZOLE
     Dosage: 20 MILLIGRAM, ONCE A DAY, UNSPECIFIED, EVERY MORNING
     Route: 048
  136. OMEPRAZOLE [Suspect]
     Active Substance: OMEPRAZOLE
     Dosage: 20 MILLIGRAM, ONCE A DAY, UNSPECIFIED, EVERY MORNIN
     Route: 065
  137. BENDROFLUMETHIAZIDE [Suspect]
     Active Substance: BENDROFLUMETHIAZIDE
     Indication: Product used for unknown indication
     Dosage: 2.5 MG, QD
     Route: 065
     Dates: start: 20171103, end: 20171103
  138. BENDROFLUMETHIAZIDE [Suspect]
     Active Substance: BENDROFLUMETHIAZIDE
     Indication: Plasma cell leukaemia
     Dosage: 2 MG, QD
     Route: 065
     Dates: start: 20171110, end: 20171114
  139. BENDROFLUMETHIAZIDE [Suspect]
     Active Substance: BENDROFLUMETHIAZIDE
     Dosage: 2 MG, QD
     Route: 065
     Dates: start: 20171107, end: 201711
  140. BENDROFLUMETHIAZIDE [Suspect]
     Active Substance: BENDROFLUMETHIAZIDE
     Dosage: 2 MG, QD
     Route: 065
     Dates: start: 20171103, end: 20171103
  141. BENDROFLUMETHIAZIDE [Suspect]
     Active Substance: BENDROFLUMETHIAZIDE
     Dosage: UNK1.8 MG/M2 Q_CYCLE / 1.3 MG/M2 DAILY /1.8UNK
     Route: 065
  142. BENDROFLUMETHIAZIDE [Suspect]
     Active Substance: BENDROFLUMETHIAZIDE
     Dosage: 10 MG, QD
     Route: 065
  143. BENDROFLUMETHIAZIDE [Suspect]
     Active Substance: BENDROFLUMETHIAZIDE
     Dosage: 2.5 MG, QD EVERY MORNING
     Route: 065
  144. BENDROFLUMETHIAZIDE [Suspect]
     Active Substance: BENDROFLUMETHIAZIDE
     Dosage: 3 MILLIGRAM
     Route: 065
     Dates: start: 20171107, end: 201711
  145. BENDROFLUMETHIAZIDE [Suspect]
     Active Substance: BENDROFLUMETHIAZIDE
     Dosage: 3 MILLIGRAM
     Route: 065
     Dates: end: 201711
  146. BENDROFLUMETHIAZIDE [Suspect]
     Active Substance: BENDROFLUMETHIAZIDE
     Dosage: 3 MG
     Route: 065
  147. BENDROFLUMETHIAZIDE [Suspect]
     Active Substance: BENDROFLUMETHIAZIDE
     Dosage: UNK,1.8 MG/M2 Q_CYCLE / 1.3 MG/M2 DAILY /1.8UNK
     Route: 065
  148. BENDROFLUMETHIAZIDE [Suspect]
     Active Substance: BENDROFLUMETHIAZIDE
     Dosage: 3 MG, QD
     Route: 065
  149. BENDROFLUMETHIAZIDE [Suspect]
     Active Substance: BENDROFLUMETHIAZIDE
     Dosage: 1.3 MG/M2, QD(EVERY CYCLE)
     Route: 058
     Dates: start: 20171106, end: 20171106
  150. BENDROFLUMETHIAZIDE [Suspect]
     Active Substance: BENDROFLUMETHIAZIDE
     Dosage: 1.8 MG
     Route: 058
     Dates: start: 20171103, end: 20171103
  151. BENDROFLUMETHIAZIDE [Suspect]
     Active Substance: BENDROFLUMETHIAZIDE
     Dosage: 1.3 MG/M2, QD(EVERY CYCLE)
     Route: 058
     Dates: start: 20171110, end: 20171110
  152. BENDROFLUMETHIAZIDE [Suspect]
     Active Substance: BENDROFLUMETHIAZIDE
     Dosage: 1.8 MG
     Route: 058
     Dates: start: 20171107, end: 201711
  153. BENDROFLUMETHIAZIDE [Suspect]
     Active Substance: BENDROFLUMETHIAZIDE
     Dosage: 1.8 MG
     Route: 058
     Dates: start: 20171110, end: 20171114
  154. BENDROFLUMETHIAZIDE [Suspect]
     Active Substance: BENDROFLUMETHIAZIDE
     Dosage: UNK
     Route: 065
  155. BENDROFLUMETHIAZIDE [Suspect]
     Active Substance: BENDROFLUMETHIAZIDE
     Dosage: 2 MILLIGRAM, ONCE A DAY
     Route: 065
     Dates: start: 20171103, end: 20171103
  156. BENDROFLUMETHIAZIDE [Suspect]
     Active Substance: BENDROFLUMETHIAZIDE
     Dosage: 2 MILLIGRAM,QD
     Route: 065
     Dates: start: 20171107, end: 201711
  157. BENDROFLUMETHIAZIDE [Suspect]
     Active Substance: BENDROFLUMETHIAZIDE
     Dosage: 10 DOSAGE FORM, QD
     Route: 065
  158. BENDROFLUMETHIAZIDE [Suspect]
     Active Substance: BENDROFLUMETHIAZIDE
     Dosage: 3 MILLIGRAM,QD
     Route: 065
  159. BENDROFLUMETHIAZIDE [Suspect]
     Active Substance: BENDROFLUMETHIAZIDE
     Dosage: 2.5 MILLIGRAM, ONCE A DAY,
     Route: 065
  160. BENDROFLUMETHIAZIDE [Suspect]
     Active Substance: BENDROFLUMETHIAZIDE
     Dosage: 2.5 MILLIGRAM, ONCE A DAY,
     Route: 065
  161. BENDROFLUMETHIAZIDE [Suspect]
     Active Substance: BENDROFLUMETHIAZIDE
     Dosage: 2.5 MILLIGRAM, ONCE A DAY,
     Route: 065
  162. BENDROFLUMETHIAZIDE [Suspect]
     Active Substance: BENDROFLUMETHIAZIDE
     Dosage: 2 MILLIGRAM,QD
     Route: 065
     Dates: start: 20171110
  163. BENDROFLUMETHIAZIDE [Suspect]
     Active Substance: BENDROFLUMETHIAZIDE
     Dosage: 2 MILLIGRAM,QD
     Route: 065
     Dates: start: 20171102, end: 20171102
  164. BENDROFLUMETHIAZIDE [Suspect]
     Active Substance: BENDROFLUMETHIAZIDE
     Dosage: 6 MG
     Route: 065
  165. RAMIPRIL [Suspect]
     Active Substance: RAMIPRIL
     Indication: Product used for unknown indication
     Dosage: 10 MG, QD, EVERY MORNING
     Route: 048
  166. RAMIPRIL [Suspect]
     Active Substance: RAMIPRIL
     Dosage: 10 MG, QD (UNSPECIFIED, EVERY MORNING)
     Route: 065
  167. BORTEZOMIB [Suspect]
     Active Substance: BORTEZOMIB
     Indication: Plasma cell leukaemia
     Dosage: 1.8 MG
     Route: 058
     Dates: start: 20171110, end: 20171114
  168. BORTEZOMIB [Suspect]
     Active Substance: BORTEZOMIB
     Dosage: 1.8 MG/M2
     Route: 058
     Dates: start: 20171107, end: 201711
  169. BORTEZOMIB [Suspect]
     Active Substance: BORTEZOMIB
     Dosage: 1.8 MG/M2, QD
     Route: 058
     Dates: start: 20171103, end: 20171103
  170. BORTEZOMIB [Suspect]
     Active Substance: BORTEZOMIB
     Dosage: 1.3 MG/M2 (EVERY CYCLE)
     Route: 058
     Dates: start: 20171110, end: 20171110
  171. BORTEZOMIB [Suspect]
     Active Substance: BORTEZOMIB
     Dosage: 1.3 MG/M2, 1 CYCLE
     Route: 058
     Dates: start: 20171106, end: 20171106
  172. BORTEZOMIB [Suspect]
     Active Substance: BORTEZOMIB
     Dosage: 1.3 MG/M2, QD
     Route: 058
     Dates: start: 20171103, end: 20171103
  173. BORTEZOMIB [Suspect]
     Active Substance: BORTEZOMIB
     Dosage: 1.8 MG
     Route: 058
     Dates: start: 20171107, end: 201711
  174. BORTEZOMIB [Suspect]
     Active Substance: BORTEZOMIB
     Dosage: 1.8 MG
     Route: 058
     Dates: start: 20171103, end: 20171103
  175. BORTEZOMIB [Suspect]
     Active Substance: BORTEZOMIB
     Dosage: 2 MG/M2
     Route: 058
  176. METOCLOPRAMIDE [Suspect]
     Active Substance: METOCLOPRAMIDE
     Indication: Product used for unknown indication
     Dosage: 10 MG, PRN (AS NECESSARY)
     Route: 065
  177. METOCLOPRAMIDE [Suspect]
     Active Substance: METOCLOPRAMIDE
     Dosage: 10 MG, PRN (AS NECESSARY) NECESSARYMEDICATION ERROR, MISUSE, ABUSE, OFF LABEL USE
     Route: 065
  178. METOCLOPRAMIDE [Suspect]
     Active Substance: METOCLOPRAMIDE
     Dosage: 20 MG, QD
     Route: 065
  179. SERTRALINE [Suspect]
     Active Substance: SERTRALINE HYDROCHLORIDE
     Indication: Product used for unknown indication
     Dosage: 50 MG, QD EVERY MORNING
     Route: 065
  180. SERTRALINE [Suspect]
     Active Substance: SERTRALINE HYDROCHLORIDE
     Indication: Emotional distress
     Dosage: 50 MG, QD
     Route: 065
  181. SERTRALINE [Suspect]
     Active Substance: SERTRALINE HYDROCHLORIDE
     Dosage: 50 MG, QD EVERY MORNING
     Route: 065
  182. SERTRALINE [Suspect]
     Active Substance: SERTRALINE HYDROCHLORIDE
     Dosage: UNK, INJECTION
     Route: 041
     Dates: start: 20171103, end: 20171106
  183. SERTRALINE [Suspect]
     Active Substance: SERTRALINE HYDROCHLORIDE
     Dosage: 50 MG, QD EVERY MORNING
     Route: 065
  184. SERTRALINE [Suspect]
     Active Substance: SERTRALINE HYDROCHLORIDE
     Dosage: 50 MILLIGRAM, ONCE A DAY
     Route: 065
  185. DEXAMETHASONE [Suspect]
     Active Substance: DEXAMETHASONE
     Indication: Product used for unknown indication
     Dosage: 20 MG, QD, DOSAGE FORM: UNSPECIFIED
     Route: 065
     Dates: start: 20171102, end: 20171106
  186. DEXAMETHASONE [Suspect]
     Active Substance: DEXAMETHASONE
     Dosage: 20 MG, UNK
     Route: 065
  187. PREDNISOLONE [Suspect]
     Active Substance: PREDNISOLONE
     Indication: Plasma cell leukaemia
     Dosage: 70 MG, QD
     Route: 065
     Dates: start: 20171106, end: 20171106
  188. PREDNISOLONE [Suspect]
     Active Substance: PREDNISOLONE
     Dosage: 70 MG, QD
     Route: 065
     Dates: start: 20171103, end: 20171103
  189. PREDNISOLONE [Suspect]
     Active Substance: PREDNISOLONE
     Dosage: 70 MG, QD
     Route: 065
     Dates: start: 20171103, end: 20171103
  190. PREDNISOLONE [Suspect]
     Active Substance: PREDNISOLONE
     Dosage: 70 MG, QD
     Route: 065
     Dates: start: 20171103, end: 20171106
  191. PREDNISOLONE [Suspect]
     Active Substance: PREDNISOLONE
     Dosage: 1 UNK CYCLICAL
     Route: 065
  192. PREDNISOLONE [Suspect]
     Active Substance: PREDNISOLONE
     Dosage: 140 MG
     Route: 065
  193. BENDROFLUMETHIAZIDE [Concomitant]
     Active Substance: BENDROFLUMETHIAZIDE
     Indication: Product used for unknown indication
     Dosage: 2.5 MG, QD
     Route: 065
  194. RAMIPRIL [Concomitant]
     Active Substance: RAMIPRIL
     Indication: Product used for unknown indication
     Dosage: 10 MG, QD(10 MG, QD ONCE A DAY UNSPESIFIED DOSAGE FORM EVERY MORNING)
     Route: 065
  195. SERTRALINE [Concomitant]
     Active Substance: SERTRALINE HYDROCHLORIDE
     Indication: Product used for unknown indication
     Dosage: 50 MG, QD
     Route: 065
  196. METOCLOPRAMIDE [Concomitant]
     Active Substance: METOCLOPRAMIDE
     Indication: Product used for unknown indication
     Dosage: 20 MG, QD
     Route: 065
  197. OMEPRAZOLE [Concomitant]
     Active Substance: OMEPRAZOLE
     Indication: Product used for unknown indication
     Dosage: 10 MG, QD
     Route: 065
  198. DEXAMETHASONE [Concomitant]
     Active Substance: DEXAMETHASONE
     Indication: Plasma cell leukaemia
     Dosage: UNK
     Route: 065
  199. ALLOPURINOL [Concomitant]
     Active Substance: ALLOPURINOL

REACTIONS (14)
  - Off label use [Unknown]
  - Product use in unapproved indication [Unknown]
  - Drug abuse [Unknown]
  - Intentional product misuse [Unknown]
  - Incorrect route of product administration [Unknown]
  - Medication error [Unknown]
  - Hallucination [Recovered/Resolved]
  - Confusional state [Recovered/Resolved]
  - Abnormal behaviour [Recovered/Resolved]
  - Disorientation [Recovered/Resolved]
  - Agitation [Recovered/Resolved]
  - Paranoia [Recovered/Resolved]
  - Disturbance in social behaviour [Recovered/Resolved]
  - Emotional distress [Not Recovered/Not Resolved]

NARRATIVE: CASE EVENT DATE: 20171107
